FAERS Safety Report 24720538 (Version 2)
Quarter: 2025Q4

REPORT INFORMATION
  Report Type: Spontaneous
  Country: US (occurrence: US)
  Receive Date: 20241211
  Receipt Date: 20251022
  Transmission Date: 20260118
  Serious: No
  Sender: CELLTRION
  Company Number: US-CELLTRION INC.-2024US023632

PATIENT

DRUGS (2)
  1. ZYMFENTRA [Suspect]
     Active Substance: INFLIXIMAB-DYYB
     Indication: Crohn^s disease
     Dosage: 120 MILLIGRAM, Q2WEEKS
     Route: 058
  2. INFLIXIMAB [Suspect]
     Active Substance: INFLIXIMAB
     Indication: Crohn^s disease
     Dosage: EVERY 2 WEEKS
     Route: 042
     Dates: end: 20240723

REACTIONS (2)
  - Product distribution issue [Not Recovered/Not Resolved]
  - Treatment delayed [Not Recovered/Not Resolved]

NARRATIVE: CASE EVENT DATE: 20240917
